FAERS Safety Report 19297958 (Version 4)
Quarter: 2025Q2

REPORT INFORMATION
  Report Type: Report from Study
  Country: US (occurrence: US)
  Receive Date: 20210524
  Receipt Date: 20250411
  Transmission Date: 20250717
  Serious: Yes (Other)
  Sender: TAKEDA
  Company Number: US-TAKEDA-2020TUS045824

PATIENT
  Age: 40 Year
  Sex: Female
  Weight: 86 kg

DRUGS (11)
  1. PARATHYROID HORMONE [Suspect]
     Active Substance: PARATHYROID HORMONE
     Indication: Hypoparathyroidism
     Dosage: 50 MICROGRAM, QD
     Dates: start: 201704, end: 201909
  2. PARATHYROID HORMONE [Suspect]
     Active Substance: PARATHYROID HORMONE
     Dosage: 50 MICROGRAM, QD
     Dates: start: 201910, end: 20191207
  3. PARATHYROID HORMONE [Suspect]
     Active Substance: PARATHYROID HORMONE
  4. ALPRAZOLAM [Concomitant]
     Active Substance: ALPRAZOLAM
     Indication: Anxiety
  5. ALPRAZOLAM [Concomitant]
     Active Substance: ALPRAZOLAM
     Indication: Bipolar disorder
  6. TRAMADOL [Concomitant]
     Active Substance: TRAMADOL
     Indication: Back pain
  7. BACLOFEN [Concomitant]
     Active Substance: BACLOFEN
     Indication: Muscle spasms
  8. NORCO [Concomitant]
     Active Substance: ACETAMINOPHEN\HYDROCODONE BITARTRATE
     Indication: Back pain
  9. SYNTHROID [Concomitant]
     Active Substance: LEVOTHYROXINE SODIUM
     Indication: Thyroid mass
  10. ZOFRAN [Concomitant]
     Active Substance: ONDANSETRON HYDROCHLORIDE
     Indication: Nausea
  11. MAGNESIUM [Concomitant]
     Active Substance: MAGNESIUM
     Indication: Hypocalcaemia
     Dates: start: 20191206, end: 20191206

REACTIONS (2)
  - Bipolar disorder [Not Recovered/Not Resolved]
  - Hypocalcaemia [Recovered/Resolved]

NARRATIVE: CASE EVENT DATE: 20190101
